FAERS Safety Report 4405879-5 (Version None)
Quarter: 2004Q3

REPORT INFORMATION
  Report Type: 
  Country: None (occurrence: None)
  Receive Date: 20040723
  Receipt Date: 20040120
  Transmission Date: 20050211
  Serious: No
  Sender: FDA-Public Use
  Company Number: US-GLAXOSMITHKLINE-A0495821A

PATIENT
  Age: 58 Year
  Sex: Female

DRUGS (10)
  1. AVANDIA [Suspect]
     Dosage: 4MG PER DAY
     Route: 048
     Dates: start: 19980101, end: 20031201
  2. LOPRESSOR [Concomitant]
  3. POTASSIUM CHLORIDE [Concomitant]
  4. METOLAZONE [Concomitant]
     Dosage: 5MG PER DAY
  5. LASIX [Concomitant]
  6. ACIPHEX [Concomitant]
     Dosage: 20MG TWICE PER DAY
  7. UNKNOWN MEDICATION [Concomitant]
  8. ASPIRIN [Concomitant]
  9. LEVOXYL [Concomitant]
     Dosage: .025MG PER DAY
  10. FOLIC ACID [Concomitant]
     Dosage: 1MG PER DAY

REACTIONS (1)
  - FLUID RETENTION [None]
